FAERS Safety Report 23920178 (Version 1)
Quarter: 2024Q2

REPORT INFORMATION
  Report Type: Spontaneous
  Country: CN (occurrence: None)
  Receive Date: 20240530
  Receipt Date: 20240530
  Transmission Date: 20240715
  Serious: Yes (Hospitalization)
  Sender: FDA-Public Use
  Company Number: 2024A122113

PATIENT
  Age: 77 Year
  Sex: Female
  Weight: 50 kg

DRUGS (4)
  1. TICAGRELOR [Suspect]
     Active Substance: TICAGRELOR
     Indication: Coronary artery disease
     Route: 048
     Dates: start: 20240506, end: 20240514
  2. TICAGRELOR [Suspect]
     Active Substance: TICAGRELOR
     Indication: Anticoagulant therapy
     Route: 048
     Dates: start: 20240506, end: 20240514
  3. ASPIRIN [Suspect]
     Active Substance: ASPIRIN
     Indication: Coronary artery disease
     Route: 048
     Dates: start: 20240506, end: 20240514
  4. ASPIRIN [Suspect]
     Active Substance: ASPIRIN
     Indication: Anticoagulant therapy
     Route: 048
     Dates: start: 20240506, end: 20240514

REACTIONS (2)
  - Anaemia [Recovering/Resolving]
  - Haematochezia [Recovering/Resolving]

NARRATIVE: CASE EVENT DATE: 20240510
